FAERS Safety Report 22136011 (Version 1)
Quarter: 2023Q1

REPORT INFORMATION
  Report Type: Spontaneous
  Country: US (occurrence: US)
  Receive Date: 20230324
  Receipt Date: 20230324
  Transmission Date: 20230418
  Serious: Yes (Death, Hospitalization, Other)
  Sender: FDA-Public Use
  Company Number: US-drreddys-LIT/USA/23/0162896

PATIENT
  Age: 59 Year
  Sex: Female

DRUGS (30)
  1. FULVESTRANT [Suspect]
     Active Substance: FULVESTRANT
     Indication: HER2 positive breast cancer
  2. FULVESTRANT [Suspect]
     Active Substance: FULVESTRANT
     Indication: Metastases to bone
  3. FULVESTRANT [Suspect]
     Active Substance: FULVESTRANT
     Indication: Metastases to liver
  4. FULVESTRANT [Suspect]
     Active Substance: FULVESTRANT
     Indication: Metastases to pleura
  5. FULVESTRANT [Suspect]
     Active Substance: FULVESTRANT
     Indication: Metastases to lung
  6. FULVESTRANT [Suspect]
     Active Substance: FULVESTRANT
     Indication: Metastases to central nervous system
  7. LETROZOLE [Suspect]
     Active Substance: LETROZOLE
     Indication: HER2 positive breast cancer
  8. LETROZOLE [Suspect]
     Active Substance: LETROZOLE
     Indication: Metastases to bone
  9. LETROZOLE [Suspect]
     Active Substance: LETROZOLE
     Indication: Metastases to liver
  10. LETROZOLE [Suspect]
     Active Substance: LETROZOLE
     Indication: Metastases to pleura
  11. LETROZOLE [Suspect]
     Active Substance: LETROZOLE
     Indication: Metastases to lung
  12. LETROZOLE [Suspect]
     Active Substance: LETROZOLE
     Indication: Metastases to central nervous system
  13. TRASTUZUMAB [Suspect]
     Active Substance: TRASTUZUMAB
     Indication: HER2 positive breast cancer
  14. TRASTUZUMAB [Suspect]
     Active Substance: TRASTUZUMAB
     Indication: Metastases to bone
  15. TRASTUZUMAB [Suspect]
     Active Substance: TRASTUZUMAB
     Indication: Metastases to liver
  16. TRASTUZUMAB [Suspect]
     Active Substance: TRASTUZUMAB
     Indication: Metastases to pleura
  17. TRASTUZUMAB [Suspect]
     Active Substance: TRASTUZUMAB
     Indication: Metastases to lung
  18. TRASTUZUMAB [Suspect]
     Active Substance: TRASTUZUMAB
     Indication: Metastases to central nervous system
  19. ALPELISIB [Suspect]
     Active Substance: ALPELISIB
     Indication: HER2 positive breast cancer
  20. ALPELISIB [Suspect]
     Active Substance: ALPELISIB
     Indication: Metastases to bone
  21. ALPELISIB [Suspect]
     Active Substance: ALPELISIB
     Indication: Metastases to liver
  22. ALPELISIB [Suspect]
     Active Substance: ALPELISIB
     Indication: Metastases to lung
  23. ALPELISIB [Suspect]
     Active Substance: ALPELISIB
     Indication: Metastases to central nervous system
  24. ALPELISIB [Suspect]
     Active Substance: ALPELISIB
     Indication: Metastases to pleura
  25. PALBOCICLIB [Suspect]
     Active Substance: PALBOCICLIB
     Indication: HER2 positive breast cancer
  26. PALBOCICLIB [Suspect]
     Active Substance: PALBOCICLIB
     Indication: Metastases to bone
  27. PALBOCICLIB [Suspect]
     Active Substance: PALBOCICLIB
     Indication: Metastases to liver
  28. PALBOCICLIB [Suspect]
     Active Substance: PALBOCICLIB
     Indication: Metastases to pleura
  29. PALBOCICLIB [Suspect]
     Active Substance: PALBOCICLIB
     Indication: Metastases to lung
  30. PALBOCICLIB [Suspect]
     Active Substance: PALBOCICLIB
     Indication: Metastases to central nervous system

REACTIONS (5)
  - Death [Fatal]
  - Colitis [Unknown]
  - Therapy partial responder [Unknown]
  - Neoplasm progression [Unknown]
  - Drug ineffective [Unknown]
